FAERS Safety Report 18200193 (Version 1)
Quarter: 2020Q3

REPORT INFORMATION
  Report Type: Spontaneous
  Country: US (occurrence: US)
  Receive Date: 20200826
  Receipt Date: 20200826
  Transmission Date: 20201103
  Serious: No
  Sender: FDA-Public Use
  Company Number: US-TEVA-2020-US-1818219

PATIENT
  Sex: Male

DRUGS (6)
  1. ESOMEPRAZOLE. [Concomitant]
     Active Substance: ESOMEPRAZOLE MAGNESIUM
  2. LOSARTAN. [Concomitant]
     Active Substance: LOSARTAN
  3. CARVEDILOL. [Concomitant]
     Active Substance: CARVEDILOL
  4. ELIQUIS [Concomitant]
     Active Substance: APIXABAN
  5. CARTIA XT [Suspect]
     Active Substance: DILTIAZEM HYDROCHLORIDE
     Route: 065
     Dates: start: 20200818
  6. CARTIA XT [Suspect]
     Active Substance: DILTIAZEM HYDROCHLORIDE
     Indication: ATRIAL FIBRILLATION
     Route: 065
     Dates: end: 202008

REACTIONS (12)
  - Pain [Recovering/Resolving]
  - Pain [Unknown]
  - Anxiety [Unknown]
  - Oesophagitis [Recovered/Resolved]
  - Abdominal pain upper [Unknown]
  - Burning sensation [Recovering/Resolving]
  - Constipation [Recovered/Resolved]
  - Chest pain [Unknown]
  - Insomnia [Unknown]
  - Muscle tightness [Recovering/Resolving]
  - Product use in unapproved indication [Unknown]
  - Abdominal distension [Unknown]

NARRATIVE: CASE EVENT DATE: 2019
